FAERS Safety Report 7309638-5 (Version None)
Quarter: 2011Q1

REPORT INFORMATION
  Report Type: 
  Country: None (occurrence: None)
  Receive Date: 20110224
  Receipt Date: 20110216
  Transmission Date: 20110831
  Serious: Yes (Hospitalization, Other)
  Sender: FDA-Public Use
  Company Number: NL-AMGEN-NLDSP2011000367

PATIENT
  Age: 76 Year
  Sex: Female

DRUGS (2)
  1. ENBREL [Suspect]
     Indication: RHEUMATOID ARTHRITIS
     Dosage: 50 MG, WEEKLY
     Dates: start: 20100716, end: 20101001
  2. MTX                                /00113801/ [Concomitant]
     Dosage: UNK

REACTIONS (4)
  - CONSTIPATION [None]
  - PNEUMONIA [None]
  - CYSTITIS [None]
  - DIARRHOEA [None]
